FAERS Safety Report 22166678 (Version 10)
Quarter: 2025Q2

REPORT INFORMATION
  Report Type: Spontaneous
  Country: US (occurrence: US)
  Receive Date: 20230403
  Receipt Date: 20250602
  Transmission Date: 20250717
  Serious: No
  Sender: PFIZER
  Company Number: US-PFIZER INC-PV202300058934

PATIENT
  Age: 85 Year
  Sex: Male
  Weight: 73.48 kg

DRUGS (4)
  1. VYNDAMAX [Suspect]
     Active Substance: TAFAMIDIS
     Indication: Amyloidosis
     Dosage: 61 MG, 1X/DAY
     Dates: start: 20220214
  2. VYNDAMAX [Suspect]
     Active Substance: TAFAMIDIS
     Indication: Acquired ATTR amyloidosis
     Dosage: 61 MG, 1X/DAY
     Route: 048
  3. VYNDAMAX [Suspect]
     Active Substance: TAFAMIDIS
     Indication: Cardiac amyloidosis
  4. VYNDAMAX [Suspect]
     Active Substance: TAFAMIDIS
     Indication: Supraventricular extrasystoles

REACTIONS (4)
  - Cardiac disorder [Unknown]
  - Wound [Unknown]
  - Drug ineffective [Unknown]
  - Oedema [Unknown]
